FAERS Safety Report 9696965 (Version 2)
Quarter: 2014Q1

REPORT INFORMATION
  Report Type: Spontaneous
  Country: US (occurrence: US)
  Receive Date: 20131119
  Receipt Date: 20140121
  Transmission Date: 20141002
  Serious: No
  Sender: FDA-Public Use
  Company Number: US-GILEAD-2013-0087745

PATIENT
  Age: 60 Year
  Sex: Female
  Weight: 92.97 kg

DRUGS (9)
  1. RANEXA [Suspect]
     Indication: ANGINA PECTORIS
     Dosage: 1000 MG, BID
     Route: 048
     Dates: start: 20120924, end: 20130815
  2. RANEXA [Suspect]
     Dosage: 500 MG, UNK
     Route: 048
     Dates: start: 2010
  3. LISINOPRIL [Concomitant]
     Indication: HYPERTENSION
  4. ASA [Concomitant]
     Indication: CORONARY ARTERY DISEASE
  5. PLAVIX [Concomitant]
     Indication: CORONARY ARTERY DISEASE
  6. TOPROL [Concomitant]
     Indication: CORONARY ARTERY DISEASE
  7. METFORMIN [Concomitant]
  8. ATORVASTATIN [Concomitant]
     Indication: HYPERLIPIDAEMIA
  9. NIASPAN [Concomitant]
     Indication: HYPERLIPIDAEMIA

REACTIONS (1)
  - Chest discomfort [Recovered/Resolved]
